FAERS Safety Report 24857006 (Version 1)
Quarter: 2025Q1

REPORT INFORMATION
  Report Type: Spontaneous
  Country: US (occurrence: None)
  Receive Date: 20250116
  Receipt Date: 20250116
  Transmission Date: 20250409
  Serious: No
  Sender: FDA-CTU
  Company Number: None

PATIENT
  Age: 61 Year
  Sex: Female
  Weight: 108 kg

DRUGS (17)
  1. SKYRIZI [Suspect]
     Active Substance: RISANKIZUMAB-RZAA
     Indication: Psoriasis
     Route: 058
     Dates: start: 20240906
  2. HUMIRA [Suspect]
     Active Substance: ADALIMUMAB
  3. DEVICE [Concomitant]
     Active Substance: DEVICE
  4. CYMBALTA [Concomitant]
     Active Substance: DULOXETINE HYDROCHLORIDE
  5. MODAFINIL [Concomitant]
     Active Substance: MODAFINIL
  6. LASIX [Concomitant]
     Active Substance: FUROSEMIDE
  7. DESOXIMETASONE [Concomitant]
     Active Substance: DESOXIMETASONE
  8. FLUOCINOLONE [Concomitant]
     Active Substance: FLUOCINOLONE
  9. PROBIOTICS NOS [Concomitant]
     Active Substance: PROBIOTICS NOS
  10. MULTI [Concomitant]
  11. VITAMIN C [Concomitant]
     Active Substance: ASCORBIC ACID
  12. VITAMIN D3 [Concomitant]
     Active Substance: CHOLECALCIFEROL
  13. TOCOPHEROL [Concomitant]
     Active Substance: TOCOPHEROL
  14. CAL MAG ZINC [Concomitant]
  15. HERBALS\TURMERIC [Concomitant]
     Active Substance: HERBALS\TURMERIC
  16. FISH OIL [Concomitant]
     Active Substance: FISH OIL
  17. GLUCOSAMINE [Concomitant]
     Active Substance: GLUCOSAMINE

REACTIONS (4)
  - Alopecia [None]
  - Pruritus [None]
  - Rash [None]
  - Skin exfoliation [None]
